FAERS Safety Report 5006326-5 (Version None)
Quarter: 2006Q2

REPORT INFORMATION
  Report Type: 
  Country: None (occurrence: None)
  Receive Date: 20060519
  Receipt Date: 20060509
  Transmission Date: 20061013
  Serious: Yes (Hospitalization)
  Sender: FDA-Public Use
  Company Number: PHBS2006AT06955

PATIENT
  Age: 76 Year
  Sex: Female

DRUGS (5)
  1. AREDIA [Suspect]
     Indication: MULTIPLE MYELOMA
     Dosage: UNK, UNK
     Route: 065
  2. ZOMETA [Suspect]
     Indication: MULTIPLE MYELOMA
     Dosage: UNK, UNK
     Route: 065
  3. CHEMOTHERAPEUTICS,OTHER [Concomitant]
     Indication: PLASMACYTOMA
     Route: 065
  4. THYREX [Concomitant]
     Dosage: 1/2 - 0 - 0
     Route: 065
  5. HYDROCORTONE [Concomitant]
     Dosage: 5 MG, 2 - 0 - 0
     Route: 065

REACTIONS (5)
  - BONE TRIMMING [None]
  - OSTEOMYELITIS [None]
  - OSTEONECROSIS [None]
  - PLASTIC SURGERY [None]
  - SEQUESTRECTOMY [None]
